FAERS Safety Report 5085385-8 (Version None)
Quarter: 2006Q3

REPORT INFORMATION
  Report Type: 
  Country: None (occurrence: None)
  Receive Date: 20060822
  Receipt Date: 20060602
  Transmission Date: 20061208
  Serious: Yes (Other)
  Sender: FDA-Public Use
  Company Number: DK-AVENTIS-200615899GDDC

PATIENT
  Age: 10 Year
  Sex: Male

DRUGS (3)
  1. DESMOPRESSIN [Suspect]
     Indication: ENURESIS
     Route: 048
  2. DESMOPRESSIN [Suspect]
     Route: 048
     Dates: start: 20060402, end: 20060403
  3. OXYBUTYNIN [Concomitant]
     Indication: HYPERTONIC BLADDER
     Route: 048
     Dates: start: 20060201, end: 20060401

REACTIONS (3)
  - HALLUCINATION [None]
  - RASH [None]
  - RASH GENERALISED [None]
